FAERS Safety Report 9709940 (Version 5)
Quarter: 2013Q4

REPORT INFORMATION
  Report Type: Spontaneous
  Country: US (occurrence: US)
  Receive Date: 20131126
  Receipt Date: 20131217
  Transmission Date: 20140711
  Serious: Yes (Life-Threatening, Hospitalization)
  Sender: FDA-Public Use
  Company Number: US-JNJFOC-20131114855

PATIENT
  Age: 73 Year
  Sex: Female
  Weight: 42.9 kg

DRUGS (2)
  1. XARELTO [Suspect]
     Indication: CEREBROVASCULAR ACCIDENT PROPHYLAXIS
     Route: 048
     Dates: start: 20130125, end: 20130519
  2. XARELTO [Suspect]
     Indication: ATRIAL FIBRILLATION
     Route: 048
     Dates: start: 20130125, end: 20130519

REACTIONS (3)
  - Fall [Unknown]
  - Subdural haematoma [Unknown]
  - Haemorrhage intracranial [Unknown]
